FAERS Safety Report 15316075 (Version 2)
Quarter: 2018Q3

REPORT INFORMATION
  Report Type: Spontaneous
  Country: US (occurrence: US)
  Receive Date: 20180824
  Receipt Date: 20180828
  Transmission Date: 20181010
  Serious: Yes (Hospitalization, Disabling, Other)
  Sender: FDA-Public Use
  Company Number: US-PFIZER INC-2018338166

PATIENT
  Age: 69 Year
  Sex: Female

DRUGS (7)
  1. FRAGMIN [Suspect]
     Active Substance: DALTEPARIN SODIUM
     Indication: THROMBOSIS
     Dosage: 5000 IU, DAILY (5000 UNITS EVERY DAY, 0.2ML INJECTION)
     Route: 058
     Dates: start: 1997
  2. ASPIRIN. [Concomitant]
     Active Substance: ASPIRIN
     Indication: BLOOD DISORDER
     Dosage: 81 MG, 1X/DAY (81MG BY MOUTH IN THE EVENINGS)
     Route: 048
  3. VITAMIN D3 [Concomitant]
     Active Substance: CHOLECALCIFEROL
     Dosage: 5000 IU, DAILY
  4. VITAMIN C [Concomitant]
     Active Substance: ASCORBIC ACID
     Dosage: 500 MG, DAILY
  5. ACCUPRIL [Concomitant]
     Active Substance: QUINAPRIL HYDROCHLORIDE
     Indication: BLOOD PRESSURE ABNORMAL
     Dosage: 20 MG, DAILY
  6. VITAMIN B1 [Concomitant]
     Active Substance: THIAMINE HYDROCHLORIDE
     Dosage: 250 MG, 1X/DAY
  7. LEVOTHYROXINE. [Concomitant]
     Active Substance: LEVOTHYROXINE
     Dosage: 0.25 MG, DAILY

REACTIONS (9)
  - Coagulation factor V level abnormal [Not Recovered/Not Resolved]
  - Cardiolipin antibody positive [Not Recovered/Not Resolved]
  - Body height decreased [Unknown]
  - Cerebrovascular accident [Unknown]
  - Beta-2 glycoprotein antibody positive [Not Recovered/Not Resolved]
  - DNA antibody positive [Not Recovered/Not Resolved]
  - Transient ischaemic attack [Unknown]
  - Cognitive disorder [Unknown]
  - Visual field defect [Unknown]

NARRATIVE: CASE EVENT DATE: 2014
